FAERS Safety Report 10025663 (Version 1)
Quarter: 2014Q1

REPORT INFORMATION
  Report Type: Spontaneous
  Country: US (occurrence: None)
  Receive Date: 20140318
  Receipt Date: 20140318
  Transmission Date: 20141002
  Serious: Yes (Hospitalization, Other)
  Sender: FDA-Public Use
  Company Number: AUR-APL-2014-02829

PATIENT
  Age: 54 Year
  Sex: Female
  Weight: 78.91 kg

DRUGS (7)
  1. CIPROFLOXACIN (CIPROFLOXACIN) [Suspect]
     Indication: CYSTITIS
  2. TRIMETHOPRIM+SULFAMETHOXAZOLE [Suspect]
     Indication: CYSTITIS
  3. DILANTIN [Suspect]
     Indication: GRAND MAL CONVULSION
     Route: 048
     Dates: start: 1964
  4. DILANTIN [Suspect]
     Indication: PETIT MAL EPILEPSY
     Route: 048
     Dates: start: 1964
  5. DILANTIN [Suspect]
     Indication: CONVULSION
     Route: 048
     Dates: start: 1964
  6. KEPPRA (LEVETIRACETAM) [Suspect]
     Indication: CONVULSION
  7. PHENOBARBITAL (PHENOBARBITAL) [Suspect]
     Indication: CONVULSION

REACTIONS (4)
  - Convulsion [None]
  - Drug interaction [None]
  - Drug ineffective [None]
  - Cystitis [None]
